FAERS Safety Report 13180785 (Version 1)
Quarter: 2017Q1

REPORT INFORMATION
  Report Type: Spontaneous
  Country: US (occurrence: US)
  Receive Date: 20170202
  Receipt Date: 20170202
  Transmission Date: 20170428
  Serious: No
  Sender: FDA-Public Use
  Company Number: US-SMITH AND NEPHEW, INC-2016SMT00104

PATIENT
  Age: 59 Year
  Sex: Female
  Weight: 99.77 kg

DRUGS (7)
  1. AMBIEN [Concomitant]
     Active Substance: ZOLPIDEM TARTRATE
  2. UNSPECIFIED MEDICATION(S) [Concomitant]
     Active Substance: UNSPECIFIED INGREDIENT
  3. BABY ASPIRIN [Concomitant]
     Active Substance: ASPIRIN
  4. CLONAZEPAM. [Concomitant]
     Active Substance: CLONAZEPAM
  5. UNSPECIFIED INSULIN [Concomitant]
     Active Substance: INSULIN NOS
  6. REGRANEX [Suspect]
     Active Substance: BECAPLERMIN
     Indication: WOUND
     Dosage: UNK, 1X/DAY
     Route: 061
     Dates: start: 201601, end: 201601
  7. HYDRALAZINE [Concomitant]
     Active Substance: HYDRALAZINE HYDROCHLORIDE

REACTIONS (1)
  - Application site infection [Recovering/Resolving]

NARRATIVE: CASE EVENT DATE: 201601
